FAERS Safety Report 8617819-3 (Version None)
Quarter: 2012Q3

REPORT INFORMATION
  Report Type: 
  Country: None (occurrence: None)
  Receive Date: 20120824
  Receipt Date: 20120302
  Transmission Date: 20120928
  Serious: No
  Sender: FDA-Public Use
  Company Number: US-ASTRAZENECA-2012SE14869

PATIENT
  Sex: Male

DRUGS (2)
  1. SYMBICORT [Suspect]
     Dosage: 4 PUFFS, UNKNOWN
     Route: 055
  2. SYMBICORT [Suspect]
     Dosage: 2 PUFFS, UNKNOWN
     Route: 055

REACTIONS (4)
  - DYSPNOEA [None]
  - FEAR OF DEATH [None]
  - OFF LABEL USE [None]
  - PRESYNCOPE [None]
